FAERS Safety Report 14128937 (Version 1)
Quarter: 2017Q4

REPORT INFORMATION
  Report Type: Report from Study
  Country: US (occurrence: US)
  Receive Date: 20171026
  Receipt Date: 20171026
  Transmission Date: 20180321
  Serious: Yes (Other)
  Sender: FDA-Public Use
  Company Number: US-AMGEN-USASL2017159309

PATIENT
  Sex: Female

DRUGS (1)
  1. REPATHA [Suspect]
     Active Substance: EVOLOCUMAB
     Indication: BLOOD CHOLESTEROL INCREASED
     Dosage: 140 MG, Q2WK
     Route: 065

REACTIONS (8)
  - Weight decreased [Unknown]
  - Gait disturbance [Unknown]
  - Nausea [Unknown]
  - Brain operation [Unknown]
  - Hip surgery [Unknown]
  - Memory impairment [Unknown]
  - Cerebrovascular accident [Unknown]
  - Cholecystectomy [Unknown]
